FAERS Safety Report 17436457 (Version 1)
Quarter: 2020Q1

REPORT INFORMATION
  Report Type: Spontaneous
  Country: US (occurrence: US)
  Receive Date: 20200219
  Receipt Date: 20200219
  Transmission Date: 20200409
  Serious: Yes (Death, Other)
  Sender: FDA-Public Use
  Company Number: US-LANTHEUS-LMI-2019-00068

PATIENT
  Age: 48 Year
  Sex: Female
  Weight: 101 kg

DRUGS (1)
  1. DEFINITY [Suspect]
     Active Substance: PERFLUTREN
     Indication: ECHOCARDIOGRAM
     Dosage: 4 ML (1.3 ML DEFINITY PREPARED IN 8.7 ML DILUENT)
     Route: 042
     Dates: start: 20181226, end: 20181226

REACTIONS (6)
  - Hypotension [Unknown]
  - Cardiac arrest [Fatal]
  - Ventricular fibrillation [Unknown]
  - Unresponsive to stimuli [Unknown]
  - Cough [Unknown]
  - Dizziness [Unknown]

NARRATIVE: CASE EVENT DATE: 20181226
